FAERS Safety Report 8861837 (Version 1)
Quarter: 2012Q4

REPORT INFORMATION
  Report Type: Spontaneous
  Country: JP (occurrence: None)
  Receive Date: 20121024
  Receipt Date: 20121024
  Transmission Date: 20130627
  Serious: Yes (Hospitalization, Other)
  Sender: FDA-Public Use
  Company Number: 2010JP003152

PATIENT
  Age: 52 Year
  Sex: Male

DRUGS (9)
  1. PROGRAF [Suspect]
     Dates: start: 200711, end: 200808
  2. PROGRAF [Suspect]
     Dates: start: 200708, end: 200711
  3. PROGRAF [Suspect]
     Dates: start: 200811, end: 200901
  4. PROGRAF [Suspect]
     Dates: start: 200901, end: 200902
  5. PROGRAF [Suspect]
     Dates: start: 200902, end: 200904
  6. ENBREL [Suspect]
     Route: 058
     Dates: start: 200711
  7. PREDNISOLONE [Concomitant]
  8. METHYLPREDNISOLONE [Concomitant]
  9. METHOTREXATE [Concomitant]

REACTIONS (9)
  - Drug ineffective [None]
  - Intentional drug misuse [None]
  - Rheumatoid arthritis [None]
  - Renal impairment [None]
  - Antisynthetase syndrome [None]
  - Interstitial lung disease [None]
  - Pulmonary fibrosis [None]
  - Emphysema [None]
  - Rash [None]
